FAERS Safety Report 5098209-X (Version None)
Quarter: 2006Q3

REPORT INFORMATION
  Report Type: 
  Country: None (occurrence: None)
  Receive Date: 20060906
  Receipt Date: 20060526
  Transmission Date: 20061208
  Serious: No
  Sender: FDA-Public Use
  Company Number: US-GLAXOSMITHKLINE-A0607641A

PATIENT
  Age: 66 Year
  Sex: Female

DRUGS (1)
  1. REQUIP [Suspect]
     Indication: DRUG USE FOR UNKNOWN INDICATION
     Dosage: 1MG AT NIGHT
     Route: 048
     Dates: start: 20051201

REACTIONS (3)
  - DRUG EFFECT DECREASED [None]
  - MUSCLE SPASMS [None]
  - SLEEP DISORDER [None]
